FAERS Safety Report 24189473 (Version 1)
Quarter: 2024Q3

REPORT INFORMATION
  Report Type: Report from Study
  Country: IN (occurrence: IN)
  Receive Date: 20240808
  Receipt Date: 20240808
  Transmission Date: 20241016
  Serious: Yes (Other)
  Sender: ROCHE
  Company Number: IN-ROCHE-10000040009

PATIENT
  Age: 69 Year
  Sex: Male
  Weight: 71.0 kg

DRUGS (1)
  1. POLIVY [Suspect]
     Active Substance: POLATUZUMAB VEDOTIN-PIIQ
     Indication: Diffuse large B-cell lymphoma
     Route: 042
     Dates: start: 20240527

REACTIONS (3)
  - Hepatic function abnormal [Unknown]
  - Ascites [Unknown]
  - COVID-19 [Unknown]
